FAERS Safety Report 25062142 (Version 3)
Quarter: 2025Q3

REPORT INFORMATION
  Report Type: Spontaneous
  Country: JP (occurrence: JP)
  Receive Date: 20250311
  Receipt Date: 20250702
  Transmission Date: 20251021
  Serious: Yes (Life-Threatening, Hospitalization, Disabling)
  Sender: MERCK SHARP & DOHME LLC
  Company Number: JP-009507513-2260902

PATIENT
  Age: 51 Year
  Sex: Female
  Weight: 46 kg

DRUGS (1)
  1. KEYTRUDA [Suspect]
     Active Substance: PEMBROLIZUMAB
     Indication: Cervix carcinoma stage III
     Route: 041

REACTIONS (2)
  - Platelet count decreased [Not Recovered/Not Resolved]
  - Female genital tract fistula [Recovering/Resolving]

NARRATIVE: CASE EVENT DATE: 20240508
